FAERS Safety Report 25157293 (Version 1)
Quarter: 2025Q2

REPORT INFORMATION
  Report Type: Spontaneous
  Country: US (occurrence: US)
  Receive Date: 20250403
  Receipt Date: 20250403
  Transmission Date: 20250717
  Serious: Yes (Life-Threatening, Hospitalization, Other)
  Sender: DR REDDYS
  Company Number: US-DRL-USA-USA/2025/03/004652

PATIENT
  Age: 36 Year
  Sex: Female

DRUGS (12)
  1. ATOMOXETINE [Suspect]
     Active Substance: ATOMOXETINE
     Indication: Major depression
  2. PROPOFOL [Suspect]
     Active Substance: PROPOFOL
     Indication: Status epilepticus
     Route: 042
  3. PROPOFOL [Suspect]
     Active Substance: PROPOFOL
     Dosage: IV DRIPS OF PROPOFOL 50 ?G/KG/MIN
     Route: 041
  4. PROPOFOL [Suspect]
     Active Substance: PROPOFOL
     Route: 042
  5. MIDAZOLAM [Concomitant]
     Active Substance: MIDAZOLAM
     Indication: Status epilepticus
     Route: 042
  6. MIDAZOLAM [Concomitant]
     Active Substance: MIDAZOLAM
     Dosage: IV DRIPS OF MIDAZOLAM 10 MG/H
     Route: 041
  7. MIDAZOLAM [Concomitant]
     Active Substance: MIDAZOLAM
     Route: 042
  8. GABAPENTIN [Concomitant]
     Active Substance: GABAPENTIN
     Indication: Major depression
  9. CLOMIPRAMINE [Concomitant]
     Active Substance: CLOMIPRAMINE
     Indication: Major depression
  10. LORAZEPAM [Concomitant]
     Active Substance: LORAZEPAM
     Indication: Status epilepticus
     Route: 042
  11. DIAZEPAM [Concomitant]
     Active Substance: DIAZEPAM
     Indication: Status epilepticus
     Route: 042
  12. LEVETIRACETAM [Concomitant]
     Active Substance: LEVETIRACETAM
     Indication: Status epilepticus
     Route: 042

REACTIONS (1)
  - Drug ineffective for unapproved indication [Unknown]
